FAERS Safety Report 25087230 (Version 2)
Quarter: 2025Q1

REPORT INFORMATION
  Report Type: Spontaneous
  Country: US (occurrence: US)
  Receive Date: 20250318
  Receipt Date: 20250320
  Transmission Date: 20250408
  Serious: No
  Sender: ELI LILLY AND COMPANY
  Company Number: US-ELI_LILLY_AND_COMPANY-US202503012836

PATIENT
  Age: 56 Year
  Sex: Male

DRUGS (5)
  1. MOUNJARO [Suspect]
     Active Substance: TIRZEPATIDE
     Indication: Type 2 diabetes mellitus
     Route: 065
     Dates: start: 20240215
  2. MOUNJARO [Suspect]
     Active Substance: TIRZEPATIDE
     Indication: Type 2 diabetes mellitus
     Route: 065
     Dates: start: 20240215
  3. MOUNJARO [Suspect]
     Active Substance: TIRZEPATIDE
     Indication: Type 2 diabetes mellitus
     Route: 065
     Dates: start: 20240215
  4. MOUNJARO [Suspect]
     Active Substance: TIRZEPATIDE
     Indication: Type 2 diabetes mellitus
     Route: 065
     Dates: start: 20240215
  5. SERTRALINE HYDROCHLORIDE [Concomitant]
     Active Substance: SERTRALINE HYDROCHLORIDE
     Indication: Depression
     Dates: start: 20090122

REACTIONS (1)
  - Accidental overdose [Unknown]

NARRATIVE: CASE EVENT DATE: 20250228
